FAERS Safety Report 10213267 (Version 1)
Quarter: 2014Q2

REPORT INFORMATION
  Report Type: Spontaneous
  Country: ES (occurrence: None)
  Receive Date: 20140529
  Receipt Date: 20140529
  Transmission Date: 20141212
  Serious: No
  Sender: FDA-Public Use
  Company Number: FK201401956

PATIENT
  Age: 75 Year
  Sex: Female

DRUGS (1)
  1. MORPHINE SULFATE INJECTION [Suspect]
     Indication: BACK PAIN
     Route: 050

REACTIONS (4)
  - Granuloma [None]
  - Pain [None]
  - Paraparesis [None]
  - Spinal disorder [None]
